FAERS Safety Report 12079870 (Version 3)
Quarter: 2016Q1

REPORT INFORMATION
  Report Type: Spontaneous
  Country: JP (occurrence: JP)
  Receive Date: 20160216
  Receipt Date: 20160314
  Transmission Date: 20160526
  Serious: Yes (Hospitalization, Other)
  Sender: FDA-Public Use
  Company Number: JP-ELI_LILLY_AND_COMPANY-JP201602000836

PATIENT
  Age: 65 Year
  Sex: Male
  Weight: 46.7 kg

DRUGS (7)
  1. CYRAMZA [Suspect]
     Active Substance: RAMUCIRUMAB
     Indication: ADENOCARCINOMA GASTRIC
     Dosage: 362.4 MG, DAY 1 + 15
     Route: 042
     Dates: start: 20151105, end: 20160107
  2. PACLITAXEL. [Suspect]
     Active Substance: PACLITAXEL
     Indication: ADENOCARCINOMA GASTRIC
     Dosage: 113.6 MG, DAY 1, 8 + 15
     Route: 042
     Dates: start: 20151105, end: 20151217
  3. PACLITAXEL. [Suspect]
     Active Substance: PACLITAXEL
     Dosage: 113.6 MG, DAY 1, 8 + 15
     Route: 042
     Dates: start: 20160107, end: 20160107
  4. DEXART [Concomitant]
     Active Substance: DEXAMETHASONE SODIUM PHOSPHATE
     Indication: PREMEDICATION
     Dosage: 6.6 MG, SINGLE
     Route: 042
     Dates: start: 20160107, end: 20160107
  5. POLARAMINE [Concomitant]
     Active Substance: DEXCHLORPHENIRAMINE MALEATE
     Indication: PREMEDICATION
     Dosage: 5 MG, SINGLE
     Route: 042
     Dates: start: 20160107, end: 20160107
  6. GRANISETRON HYDROCHLORIDE. [Concomitant]
     Active Substance: GRANISETRON HYDROCHLORIDE
     Indication: PREMEDICATION
     Dosage: 1 MG, SINGLE
     Route: 042
     Dates: start: 20160107, end: 20160107
  7. FAMOTIDINE. [Concomitant]
     Active Substance: FAMOTIDINE
     Indication: PREMEDICATION
     Dosage: 20 MG, SINGLE
     Route: 042
     Dates: start: 20160107, end: 20160107

REACTIONS (4)
  - Cardiac failure [Not Recovered/Not Resolved]
  - Pneumonia [Recovered/Resolved]
  - Neutrophil count decreased [Recovered/Resolved]
  - Bundle branch block right [Not Recovered/Not Resolved]

NARRATIVE: CASE EVENT DATE: 20151224
